FAERS Safety Report 10218900 (Version 2)
Quarter: 2014Q2

REPORT INFORMATION
  Report Type: Spontaneous
  Country: JP (occurrence: JP)
  Receive Date: 20140605
  Receipt Date: 20140625
  Transmission Date: 20141212
  Serious: Yes (Other)
  Sender: FDA-Public Use
  Company Number: JP-AMGEN-JPNSP2014041746

PATIENT
  Age: 80 Year
  Sex: Female
  Weight: 54 kg

DRUGS (7)
  1. PRALIA [Suspect]
     Indication: OSTEOPOROSIS
     Dosage: 60 MG, Q6MO
     Route: 058
     Dates: start: 20140508
  2. BUP-4 [Concomitant]
     Dosage: 20 MG, QD
     Route: 065
     Dates: start: 20140508, end: 20140518
  3. MUCOSTA [Concomitant]
     Dosage: 100 MG, QD
     Route: 048
  4. LOCHOL                             /01224502/ [Concomitant]
     Dosage: 20 MG, QD
     Route: 048
  5. MOBIC [Concomitant]
     Dosage: 10 MG, QD
     Route: 048
  6. OPALMON [Concomitant]
     Dosage: 5 MUG, TID
     Route: 048
  7. DENOTAS [Concomitant]
     Dosage: 2 DF, QD
     Route: 048

REACTIONS (4)
  - Feeling abnormal [Recovered/Resolved]
  - Tremor [Recovered/Resolved]
  - Thirst [Recovered/Resolved]
  - Blood pressure increased [Recovered/Resolved]
